FAERS Safety Report 9161919 (Version 2)
Quarter: 2013Q1

REPORT INFORMATION
  Report Type: Spontaneous
  Country: JP (occurrence: None)
  Receive Date: 20130225
  Receipt Date: 20130321
  Transmission Date: 20140127
  Serious: Yes (Hospitalization)
  Sender: FDA-Public Use
  Company Number: TCI2013A00846

PATIENT
  Age: 65 Year
  Sex: Male

DRUGS (7)
  1. ALOGLIPTIN BENZOATE [Suspect]
     Dosage: SYR 322 25 MG OR PLACEBO (1 IN 1 D), PER ORAL
     Route: 048
     Dates: start: 20121205, end: 20131205
  2. SYR-427 [Suspect]
     Indication: TYPE 2 DIABETES MELLITUS
     Dosage: SYR-472 100 MG OR PLACEBO ( 1 IN 1 WK) PER ORAL
     Route: 048
     Dates: start: 20121205
  3. BENIDIPINE HYDROCHLORIDE [Concomitant]
  4. METININ (ATENOLOL) [Concomitant]
  5. MOHRUS TAPE L (KETOPROFEN) [Concomitant]
  6. KELGER (TERBINAPINE HYDROCHLORIDE) [Concomitant]
  7. XALATAN (LATANOPROST) [Concomitant]

REACTIONS (6)
  - Myocardial infarction [None]
  - Angina unstable [None]
  - Dilatation ventricular [None]
  - Left ventricular hypertrophy [None]
  - Coronary artery stenosis [None]
  - Sleep apnoea syndrome [None]
